FAERS Safety Report 23513488 (Version 1)
Quarter: 2024Q1

REPORT INFORMATION
  Report Type: Spontaneous
  Country: US (occurrence: US)
  Receive Date: 20240212
  Receipt Date: 20240212
  Transmission Date: 20240410
  Serious: No
  Sender: FDA-Public Use
  Company Number: US-BAYER-2024A021097

PATIENT
  Age: 68 Year
  Sex: Female

DRUGS (2)
  1. ASTEPRO [Suspect]
     Active Substance: AZELASTINE HYDROCHLORIDE
  2. PATANASE [Concomitant]
     Active Substance: OLOPATADINE HYDROCHLORIDE

REACTIONS (2)
  - Therapeutic product effect incomplete [Unknown]
  - Nasal discomfort [Unknown]
